FAERS Safety Report 7513138-7 (Version None)
Quarter: 2011Q2

REPORT INFORMATION
  Report Type: 
  Country: None (occurrence: None)
  Receive Date: 20110531
  Receipt Date: 20110519
  Transmission Date: 20111010
  Serious: Yes (Other)
  Sender: FDA-Public Use
  Company Number: CA-MERCK-1105USA02288

PATIENT
  Age: 51 Year
  Sex: Male

DRUGS (5)
  1. TYLENOL W/ CODEINE NO. 3 [Concomitant]
     Indication: PAIN
     Route: 065
     Dates: start: 20110303
  2. SINEMET [Suspect]
     Dosage: 4.5 TABLES
     Route: 048
     Dates: start: 20110303, end: 20110304
  3. SINEMET [Suspect]
     Indication: PARKINSON'S DISEASE
     Route: 048
     Dates: start: 20091109
  4. DOMPERIDONE [Concomitant]
     Route: 065
  5. PRAMIPEXOLE [Concomitant]
     Route: 065

REACTIONS (5)
  - EMOTIONAL DISTRESS [None]
  - HALLUCINATION [None]
  - MUSCLE SPASMS [None]
  - DISCOMFORT [None]
  - WRONG TECHNIQUE IN DRUG USAGE PROCESS [None]
